FAERS Safety Report 7661191-2 (Version None)
Quarter: 2011Q3

REPORT INFORMATION
  Report Type: 
  Country: None (occurrence: None)
  Receive Date: 20110805
  Receipt Date: 20101109
  Transmission Date: 20111222
  Serious: No
  Sender: FDA-Public Use
  Company Number: US-ABBOTT-10P-163-0685038-00

PATIENT
  Sex: Male

DRUGS (2)
  1. OTC COLD MEDICATIONS [Concomitant]
     Indication: PRODUCT USED FOR UNKNOWN INDICATION
  2. NIASPAN [Suspect]
     Indication: HIGH DENSITY LIPOPROTEIN DECREASED
     Dosage: NIGHTLY
     Route: 048
     Dates: start: 20100907

REACTIONS (6)
  - NASAL CONGESTION [None]
  - PRURITUS [None]
  - RHINORRHOEA [None]
  - COUGH [None]
  - NASOPHARYNGITIS [None]
  - PARAESTHESIA [None]
